FAERS Safety Report 5869463-9 (Version None)
Quarter: 2008Q3

REPORT INFORMATION
  Report Type: 
  Country: None (occurrence: None)
  Receive Date: 20080829
  Receipt Date: 20080513
  Transmission Date: 20090109
  Serious: No
  Sender: FDA-Public Use
  Company Number: US023827

PATIENT
  Age: 14968 Day
  Sex: Male

DRUGS (4)
  1. FENTORA [Suspect]
     Indication: BACK PAIN
     Dosage: 600 MG EVERY 4 TO 6 HOURS BUCCAL
     Route: 002
     Dates: start: 20070101
  2. FENTORA [Suspect]
     Indication: NECK PAIN
     Dosage: 600 MG EVERY 4 TO 6 HOURS BUCCAL
     Route: 002
     Dates: start: 20070101
  3. ACTIQ [Concomitant]
  4. OXYCONTIN [Concomitant]

REACTIONS (1)
  - DRUG PRESCRIBING ERROR [None]
